FAERS Safety Report 15813778 (Version 6)
Quarter: 2019Q2

REPORT INFORMATION
  Report Type: Spontaneous
  Country: FR (occurrence: FR)
  Receive Date: 20190111
  Receipt Date: 20190401
  Transmission Date: 20190711
  Serious: Yes (Hospitalization)
  Sender: FDA-Public Use
  Company Number: FR-TAKEDA-LTI2006A00294

PATIENT

DRUGS (14)
  1. PULMICORT TURBUHALER [Concomitant]
     Active Substance: BUDESONIDE
     Indication: BRONCHITIS
     Dosage: UNK
     Route: 055
  2. METHYLPREDNISOLONE. [Concomitant]
     Active Substance: METHYLPREDNISOLONE
     Indication: BRONCHITIS
     Dosage: UNK
     Route: 048
  3. PREVISCAN                          /00789001/ [Interacting]
     Active Substance: FLUINDIONE
     Indication: ATRIAL FIBRILLATION
     Dosage: 15 MILLIGRAM, QD
     Route: 048
  4. KETEK [Interacting]
     Active Substance: TELITHROMYCIN
     Indication: BRONCHITIS
     Dosage: UNK
     Route: 048
  5. KETEK [Interacting]
     Active Substance: TELITHROMYCIN
     Indication: HAEMOPTYSIS
  6. IPRATROPIUM BROMIDE\FENOTEROL HYDROBROMIDE [Concomitant]
     Active Substance: FENOTEROL HYDROBROMIDE\IPRATROPIUM BROMIDE
     Indication: BRONCHITIS
     Dosage: UNK
     Route: 055
  7. PROZAC [Interacting]
     Active Substance: FLUOXETINE HYDROCHLORIDE
     Indication: PRODUCT USED FOR UNKNOWN INDICATION
     Dosage: 20 MILLIGRAM, QD
     Route: 048
     Dates: start: 200608, end: 200608
  8. CLARITHROMYCIN. [Interacting]
     Active Substance: CLARITHROMYCIN
     Indication: PRODUCT USED FOR UNKNOWN INDICATION
     Dosage: UNK
     Route: 048
  9. SOLU-MEDROL [Concomitant]
     Active Substance: METHYLPREDNISOLONE SODIUM SUCCINATE
     Indication: BRONCHITIS
     Dosage: UNK
     Route: 048
  10. DUOVENT [Concomitant]
     Active Substance: FENOTEROL HYDROBROMIDE
     Indication: BRONCHITIS
     Dosage: UNK
     Route: 055
  11. PREVISCAN                          /00789001/ [Interacting]
     Active Substance: FLUINDIONE
     Indication: TACHYARRHYTHMIA
  12. BRONCHATHIOL [Concomitant]
     Indication: BRONCHITIS
     Dosage: UNK
  13. OGAST [Suspect]
     Active Substance: LANSOPRAZOLE
     Indication: PRODUCT USED FOR UNKNOWN INDICATION
     Dosage: 30 MILLIGRAM, QD
     Route: 048
  14. PENTOXIFYLLINE. [Interacting]
     Active Substance: PENTOXIFYLLINE
     Indication: PRODUCT USED FOR UNKNOWN INDICATION
     Dosage: 15 MILLIGRAM, QD
     Route: 048

REACTIONS (8)
  - Haemoptysis [Recovered/Resolved]
  - International normalised ratio increased [Recovered/Resolved]
  - Prothrombin level decreased [Recovered/Resolved]
  - Overdose [Unknown]
  - Drug interaction [Recovered/Resolved]
  - Overdose [Recovered/Resolved]
  - Bronchitis [Recovered/Resolved]
  - Prothrombin level decreased [Recovered/Resolved]

NARRATIVE: CASE EVENT DATE: 20060827
